FAERS Safety Report 14257449 (Version 1)
Quarter: 2017Q4

REPORT INFORMATION
  Report Type: Spontaneous
  Country: TR (occurrence: TR)
  Receive Date: 20171207
  Receipt Date: 20171207
  Transmission Date: 20180321
  Serious: Yes (Life-Threatening, Hospitalization, Other)
  Sender: FDA-Public Use
  Company Number: TR-VISTAPHARM, INC.-VER201708-000488

PATIENT
  Age: 2 Year
  Sex: Female

DRUGS (4)
  1. CEFTRIAXONE. [Concomitant]
     Active Substance: CEFTRIAXONE
     Indication: SEPSIS
  2. DIPHENHYDRAMINE. [Concomitant]
     Active Substance: DIPHENHYDRAMINE
     Indication: PRODUCT USED FOR UNKNOWN INDICATION
  3. METOCLOPRAMIDE. [Suspect]
     Active Substance: METOCLOPRAMIDE
     Indication: VOMITING
     Route: 030
  4. VITAMIN K [Concomitant]
     Active Substance: PHYTONADIONE
     Indication: HYPERPROTHROMBINAEMIA

REACTIONS (3)
  - Renal failure [Recovered/Resolved]
  - Neuroleptic malignant syndrome [Recovered/Resolved]
  - Dehydration [Recovered/Resolved]
